FAERS Safety Report 8086174-2 (Version None)
Quarter: 2012Q1

REPORT INFORMATION
  Report Type: 
  Country: None (occurrence: None)
  Receive Date: 20120128
  Receipt Date: 20110426
  Transmission Date: 20120608
  Serious: No
  Sender: FDA-Public Use
  Company Number: US-ABBOTT-11P-163-0721819-00

PATIENT
  Age: 60 Year
  Sex: Female

DRUGS (6)
  1. CELEXA [Concomitant]
     Indication: DEPRESSION
  2. MICARDIS [Concomitant]
     Indication: HYPERTENSION
  3. HUMIRA [Suspect]
     Indication: PSORIATIC ARTHROPATHY
     Dates: start: 20101101
  4. SIMVASTATIN [Concomitant]
     Indication: BLOOD CHOLESTEROL INCREASED
  5. UNKNOWN MEDICATION [Concomitant]
     Indication: ARTHRITIS
  6. TRICOR [Concomitant]
     Indication: BLOOD TRIGLYCERIDES

REACTIONS (2)
  - PARAESTHESIA [None]
  - HYPOAESTHESIA [None]
